FAERS Safety Report 9454682 (Version 1)
Quarter: 2013Q3

REPORT INFORMATION
  Report Type: Spontaneous
  Country: IN (occurrence: IN)
  Receive Date: 20130812
  Receipt Date: 20130812
  Transmission Date: 20140515
  Serious: Yes (Death, Other)
  Sender: FDA-Public Use
  Company Number: PHHY2013IN085289

PATIENT
  Sex: Female

DRUGS (2)
  1. METHOTREXATE [Suspect]
     Indication: CHORIOCARCINOMA
     Route: 030
  2. FOLINIC ACID [Concomitant]
     Indication: CHORIOCARCINOMA

REACTIONS (12)
  - Death [Fatal]
  - Pancytopenia [Fatal]
  - White blood cell count decreased [Fatal]
  - Toxicity to various agents [Fatal]
  - Cardiac arrest [Unknown]
  - Dysphagia [Unknown]
  - Trismus [Unknown]
  - Generalised oedema [Unknown]
  - Vomiting [Unknown]
  - Mouth ulceration [Unknown]
  - Mucosal inflammation [Unknown]
  - Laryngeal ulceration [Unknown]
